FAERS Safety Report 23966751 (Version 1)
Quarter: 2024Q2

REPORT INFORMATION
  Report Type: Spontaneous
  Country: US (occurrence: US)
  Receive Date: 20240612
  Receipt Date: 20240612
  Transmission Date: 20240715
  Serious: No
  Sender: FDA-Public Use
  Company Number: US-BoehringerIngelheim-2024-BI-033325

PATIENT
  Age: 45 Year
  Sex: Male

DRUGS (8)
  1. JARDIANCE [Suspect]
     Active Substance: EMPAGLIFLOZIN
     Indication: Product used for unknown indication
     Dates: start: 2024
  2. MOUNJARO [Suspect]
     Active Substance: TIRZEPATIDE
     Indication: Type 2 diabetes mellitus
     Dates: end: 202402
  3. MOUNJARO [Suspect]
     Active Substance: TIRZEPATIDE
     Dosage: FORM STRENGTH: 10MG/0.5ML
     Route: 058
     Dates: start: 202405
  4. MOUNJARO [Suspect]
     Active Substance: TIRZEPATIDE
     Dosage: FORM STRENGTH: 2.5MG/0.5ML
  5. MOUNJARO [Suspect]
     Active Substance: TIRZEPATIDE
  6. TRULICITY [Suspect]
     Active Substance: DULAGLUTIDE
     Indication: Type 2 diabetes mellitus
     Dosage: FORM STRENGTH: 1.5MG/0.5ML
     Route: 058
  7. ACCUTANE [Concomitant]
     Active Substance: ISOTRETINOIN
     Indication: Acne
     Dates: end: 2024
  8. DAPAGLIFLOZIN [Concomitant]
     Active Substance: DAPAGLIFLOZIN
     Indication: Product used for unknown indication

REACTIONS (8)
  - Renal injury [Recovered/Resolved]
  - Visual impairment [Recovered/Resolved]
  - Blood triglycerides increased [Unknown]
  - Skin disorder [Unknown]
  - Blood glucose increased [Unknown]
  - Liver injury [Recovered/Resolved]
  - Product dose omission issue [Unknown]
  - Fungal infection [Recovered/Resolved]

NARRATIVE: CASE EVENT DATE: 20240101
